FAERS Safety Report 12902499 (Version 2)
Quarter: 2016Q4

REPORT INFORMATION
  Report Type: Spontaneous
  Country: JP (occurrence: JP)
  Receive Date: 20161102
  Receipt Date: 20161110
  Transmission Date: 20170207
  Serious: Yes (Other)
  Sender: FDA-Public Use
  Company Number: JP-VALIDUS PHARMACEUTICALS LLC-JP-2016VAL002932

PATIENT
  Age: 25 Year
  Sex: Female

DRUGS (1)
  1. PARLODEL [Suspect]
     Active Substance: BROMOCRIPTINE MESYLATE
     Indication: PRODUCT USED FOR UNKNOWN INDICATION
     Dosage: UNK
     Route: 048

REACTIONS (6)
  - Duodenitis [Unknown]
  - Abdominal pain upper [Unknown]
  - Gastritis erosive [Unknown]
  - Gastrointestinal mucosal disorder [Unknown]
  - Duodenal ulcer [Unknown]
  - Lymphoid tissue hyperplasia [Unknown]
